FAERS Safety Report 11752923 (Version 1)
Quarter: 2015Q4

REPORT INFORMATION
  Report Type: Spontaneous
  Country: US (occurrence: None)
  Receive Date: 20151117
  Receipt Date: 20151117
  Transmission Date: 20160304
  Serious: Yes (Other)
  Sender: FDA-Public Use
  Company Number: None

PATIENT
  Age: 39 Year
  Sex: Male
  Weight: 100 kg

DRUGS (1)
  1. REMBRANDT [Suspect]
     Active Substance: UNSPECIFIED INGREDIENT
     Indication: DENTAL CARE
     Dosage: AS PER LABEL, ONCE, ORAL
     Route: 048
     Dates: start: 20150818, end: 20150818

REACTIONS (9)
  - Gingival pain [None]
  - Swelling face [None]
  - Speech disorder [None]
  - Swelling [None]
  - Blister [None]
  - Burning sensation [None]
  - Pain [None]
  - Stomatitis [None]
  - Lip swelling [None]

NARRATIVE: CASE EVENT DATE: 20150819
